FAERS Safety Report 5907921-9 (Version None)
Quarter: 2008Q4

REPORT INFORMATION
  Report Type: 
  Country: None (occurrence: None)
  Receive Date: 20081003
  Receipt Date: 20080923
  Transmission Date: 20090506
  Serious: Yes (Other)
  Sender: FDA-Public Use
  Company Number: CA-ELI_LILLY_AND_COMPANY-CA200806004095

PATIENT
  Age: 30 Year
  Sex: Female

DRUGS (20)
  1. CYMBALTA [Suspect]
     Indication: FIBROMYALGIA
     Dosage: 60 MG, UNK
     Route: 048
     Dates: start: 20080612, end: 20080613
  2. DARVON [Concomitant]
     Dosage: 100 MG, AS NEEDED
  3. ADVIL LIQUI-GELS [Concomitant]
  4. BENADRYL [Concomitant]
     Indication: HYPERSENSITIVITY
     Dosage: 25 MG, AS NEEDED
  5. ATIVAN [Concomitant]
     Dosage: 1 MG, UNK
  6. DEMEROL [Concomitant]
     Dosage: 50 MG, AS NEEDED
  7. GRAVOL TAB [Concomitant]
     Dosage: 50 MG, UNK
  8. IMOVANE [Concomitant]
     Dosage: 7.5 MG, UNK
  9. FLEXERIL [Concomitant]
     Dosage: 10 MG, 3/D
  10. XANAX [Concomitant]
     Dosage: 0.25 MG, DAILY (1/D)
  11. CELEBREX [Concomitant]
     Dosage: 200 MG, 2/D
  12. PREVACID [Concomitant]
     Dosage: 30 MG, DAILY (1/D)
  13. DEPO-PROVERA [Concomitant]
     Dosage: 150 MG, UNK
  14. DICLOFENAC DIETHYLAMINE [Concomitant]
     Dosage: 5 %, UNK
     Route: 061
  15. CAPSAICIN [Concomitant]
     Dosage: 0.025 %, UNK
     Route: 061
  16. GLUCOSAMINE/CHONDROITIN /01625901/ [Concomitant]
     Dosage: UNK, 2/D
  17. MSM [Concomitant]
     Dosage: 1000 MG, DAILY (1/D)
  18. VITAMIN D [Concomitant]
     Dosage: 1000 IU, DAILY (1/D)
  19. CALCIUM W/MAGNESIUM [Concomitant]
     Dosage: UNK, 2/D
  20. ASCORBIC ACID [Concomitant]
     Dosage: 500 MG, 4/D

REACTIONS (8)
  - BLINDNESS [None]
  - EYE PAIN [None]
  - FATIGUE [None]
  - HEADACHE [None]
  - NAUSEA [None]
  - PALPITATIONS [None]
  - PHOTOPHOBIA [None]
  - VISION BLURRED [None]
